FAERS Safety Report 5753940-5 (Version None)
Quarter: 2008Q2

REPORT INFORMATION
  Report Type: 
  Country: None (occurrence: None)
  Receive Date: 20080527
  Receipt Date: 20080513
  Transmission Date: 20081010
  Serious: No
  Sender: FDA-Public Use
  Company Number: 2008-177444-NL

PATIENT
  Sex: Female

DRUGS (2)
  1. MIRTAZAPINE [Suspect]
     Dosage: 45 MG
  2. METHADONE HCL [Suspect]
     Dosage: DF

REACTIONS (4)
  - DRUG EXPOSURE DURING PREGNANCY [None]
  - HEAD DEFORMITY [None]
  - MATERNAL DRUGS AFFECTING FOETUS [None]
  - UNDERWEIGHT [None]
